FAERS Safety Report 7903417-3 (Version None)
Quarter: 2011Q4

REPORT INFORMATION
  Report Type: 
  Country: None (occurrence: None)
  Receive Date: 20111109
  Receipt Date: 20111104
  Transmission Date: 20120403
  Serious: No
  Sender: FDA-Public Use
  Company Number: US-AMGEN-USASP2011042911

PATIENT
  Age: 48 Year
  Sex: Female
  Weight: 112.93 kg

DRUGS (3)
  1. ENBREL [Suspect]
     Indication: PSORIASIS
     Dosage: 50 MG, QWK
     Dates: start: 20110718, end: 20110927
  2. ENBREL [Suspect]
     Indication: PSORIATIC ARTHROPATHY
  3. ENBREL [Suspect]
     Indication: FIBROMYALGIA

REACTIONS (5)
  - HEADACHE [None]
  - DENTAL CARIES [None]
  - PSORIASIS [None]
  - SOMNOLENCE [None]
  - TOOTHACHE [None]
